FAERS Safety Report 23240404 (Version 1)
Quarter: 2023Q4

REPORT INFORMATION
  Report Type: Spontaneous
  Country: US (occurrence: None)
  Receive Date: 20231129
  Receipt Date: 20231129
  Transmission Date: 20240109
  Serious: Yes (Hospitalization)
  Sender: FDA-Public Use
  Company Number: None

PATIENT
  Age: 62 Year
  Sex: Male
  Weight: 107.46 kg

DRUGS (3)
  1. DARATUMUMAB [Suspect]
     Active Substance: DARATUMUMAB
     Dates: end: 20210908
  2. DEXAMETHASONE [Suspect]
     Active Substance: DEXAMETHASONE
     Dates: end: 20210908
  3. LENALIDOMIDE [Suspect]
     Active Substance: LENALIDOMIDE
     Dates: end: 20210907

REACTIONS (11)
  - Pruritus [None]
  - Erythema [None]
  - Chest discomfort [None]
  - Chest pain [None]
  - Injection related reaction [None]
  - Dizziness [None]
  - Diarrhoea [None]
  - Hypoaesthesia [None]
  - Confusional state [None]
  - Abdominal pain [None]
  - Hyperglycaemia [None]

NARRATIVE: CASE EVENT DATE: 20210908
